FAERS Safety Report 14508460 (Version 2)
Quarter: 2018Q1

REPORT INFORMATION
  Report Type: Spontaneous
  Country: NL (occurrence: NL)
  Receive Date: 20180209
  Receipt Date: 20180226
  Transmission Date: 20180509
  Serious: Yes (Death, Life-Threatening, Hospitalization, Other)
  Sender: FDA-Public Use
  Company Number: NL-VISTAPHARM, INC.-VER201801-000309

PATIENT
  Age: 82 Year
  Sex: Female

DRUGS (2)
  1. LACTULOSE. [Suspect]
     Active Substance: LACTULOSE
     Indication: CONSTIPATION
  2. MORPHINE [Concomitant]
     Active Substance: MORPHINE
     Indication: CONSTIPATION

REACTIONS (7)
  - Nausea [Unknown]
  - Aspiration [Fatal]
  - Respiratory failure [Fatal]
  - Megacolon [Unknown]
  - Gastrointestinal sounds abnormal [Unknown]
  - Intestinal obstruction [Unknown]
  - Gastric dilatation [Unknown]
